FAERS Safety Report 11876415 (Version 2)
Quarter: 2017Q2

REPORT INFORMATION
  Report Type: Report from Study
  Country: US (occurrence: US)
  Receive Date: 20151229
  Receipt Date: 20170508
  Transmission Date: 20170829
  Serious: Yes (Hospitalization, Other)
  Sender: FDA-Public Use
  Company Number: US-AMGEN-USASL2015136803

PATIENT
  Age: 55 Year
  Sex: Female

DRUGS (2)
  1. ENBREL [Suspect]
     Active Substance: ETANERCEPT
     Dosage: UNK
     Route: 065
  2. ENBREL [Suspect]
     Active Substance: ETANERCEPT
     Indication: RHEUMATOID ARTHRITIS
     Dosage: 50 MG, 2 TIMES/WK
     Route: 065
     Dates: start: 2012, end: 2013

REACTIONS (13)
  - Pyrexia [Recovered/Resolved]
  - Platelet count increased [Unknown]
  - Condition aggravated [Unknown]
  - Coronary artery occlusion [Unknown]
  - Segmented hyalinising vasculitis [Unknown]
  - Oropharyngeal pain [Recovering/Resolving]
  - Injection site bruising [Unknown]
  - Injection site pain [Unknown]
  - Nausea [Unknown]
  - Chest pain [Unknown]
  - Systemic lupus erythematosus [Unknown]
  - Platelet disorder [Unknown]
  - Myocardial infarction [Unknown]

NARRATIVE: CASE EVENT DATE: 2013
